FAERS Safety Report 18301156 (Version 1)
Quarter: 2020Q3

REPORT INFORMATION
  Report Type: Spontaneous
  Country: US (occurrence: US)
  Receive Date: 20200923
  Receipt Date: 20200923
  Transmission Date: 20201103
  Serious: Yes (Disabling)
  Sender: FDA-Public Use
  Company Number: None

PATIENT
  Age: 29 Year
  Sex: Female
  Weight: 67.5 kg

DRUGS (6)
  1. LAMICTAL [Concomitant]
     Active Substance: LAMOTRIGINE
  2. CLONAZEPAM. [Concomitant]
     Active Substance: CLONAZEPAM
  3. BIRTH CONTROL CONTRACEPTIVE [Concomitant]
  4. PROTONIX [Concomitant]
     Active Substance: PANTOPRAZOLE SODIUM
  5. IBUPROFEN. [Concomitant]
     Active Substance: IBUPROFEN
  6. NP THYROID [Suspect]
     Active Substance: LEVOTHYROXINE\LIOTHYRONINE
     Indication: HYPOTHYROIDISM
     Dosage: ?          QUANTITY:1 TABLET(S);?
     Route: 048

REACTIONS (8)
  - Blood thyroid stimulating hormone increased [None]
  - Dyspepsia [None]
  - Abdominal pain upper [None]
  - Alopecia [None]
  - Headache [None]
  - Sleep disorder [None]
  - Dyspnoea [None]
  - Hypothyroidism [None]

NARRATIVE: CASE EVENT DATE: 20200801
